FAERS Safety Report 14900510 (Version 1)
Quarter: 2018Q2

REPORT INFORMATION
  Report Type: Spontaneous
  Country: US (occurrence: US)
  Receive Date: 20180427
  Receipt Date: 20180427
  Transmission Date: 20180711
  Serious: Yes (Other)
  Sender: FDA-Public Use
  Company Number: None

PATIENT
  Age: 19 Year
  Sex: Male
  Weight: 95.9 kg

DRUGS (1)
  1. ETOPOSIDE. [Suspect]
     Active Substance: ETOPOSIDE
     Indication: RHABDOID TUMOUR OF THE KIDNEY
     Route: 042
     Dates: start: 20180220, end: 20180220

REACTIONS (5)
  - Erythema [None]
  - Infusion related reaction [None]
  - Dyspnoea [None]
  - Cough [None]
  - Hypoaesthesia oral [None]

NARRATIVE: CASE EVENT DATE: 20180220
